FAERS Safety Report 20968369 (Version 5)
Quarter: 2022Q4

REPORT INFORMATION
  Report Type: Report from Study
  Country: US (occurrence: US)
  Receive Date: 20220616
  Receipt Date: 20221004
  Transmission Date: 20230113
  Serious: No
  Sender: FDA-Public Use
  Company Number: US-NOVARTISTESTPH-NVSC2022US131479

PATIENT
  Sex: Male

DRUGS (3)
  1. ENTRESTO [Suspect]
     Active Substance: SACUBITRIL\VALSARTAN
     Indication: Product used for unknown indication
     Dosage: UNK UNK, (24/26 MG) BID
     Route: 065
  2. ENTRESTO [Suspect]
     Active Substance: SACUBITRIL\VALSARTAN
     Dosage: UNK UNK, (49/51 MG) BID
     Route: 048
  3. ENTRESTO [Suspect]
     Active Substance: SACUBITRIL\VALSARTAN
     Dosage: UNK, (49.51 MG) BID
     Route: 048

REACTIONS (6)
  - Back pain [Recovering/Resolving]
  - Flank pain [Recovering/Resolving]
  - Pollakiuria [Recovering/Resolving]
  - Thyroid mass [Unknown]
  - Dyspnoea [Unknown]
  - Dysphagia [Unknown]
